FAERS Safety Report 23240225 (Version 2)
Quarter: 2023Q4

REPORT INFORMATION
  Report Type: Report from Study
  Country: GB (occurrence: GB)
  Receive Date: 20231129
  Receipt Date: 20231130
  Transmission Date: 20240110
  Serious: Yes (Hospitalization)
  Sender: FDA-Public Use
  Company Number: GB-002147023-NVSC2023GB250345

PATIENT
  Sex: Female

DRUGS (2)
  1. COSENTYX [Suspect]
     Active Substance: SECUKINUMAB
     Indication: Psoriasis
     Dosage: 150 MG, QMO
     Route: 058
     Dates: start: 20230928
  2. COSENTYX [Suspect]
     Active Substance: SECUKINUMAB
     Dosage: UNK(04 NOV)
     Route: 065

REACTIONS (5)
  - Feeling abnormal [Unknown]
  - Dehydration [Unknown]
  - Malaise [Unknown]
  - Memory impairment [Unknown]
  - Product dose omission issue [Unknown]
